FAERS Safety Report 5360629-3 (Version None)
Quarter: 2007Q2

REPORT INFORMATION
  Report Type: 
  Country: None (occurrence: None)
  Receive Date: 20070618
  Receipt Date: 20070604
  Transmission Date: 20071010
  Serious: Yes (Hospitalization, Other)
  Sender: FDA-Public Use
  Company Number: PHBS2007FI09347

PATIENT
  Age: 28 Year
  Sex: Male

DRUGS (4)
  1. CLOZAPINE [Suspect]
     Indication: SCHIZOPHRENIA
     Dosage: UNK, UNK
     Route: 065
     Dates: start: 20051103, end: 20051101
  2. CLOZAPINE [Suspect]
     Dosage: 200 MG/DAY
     Route: 065
     Dates: start: 20061212, end: 20070331
  3. TENOX [Concomitant]
     Dosage: 20 MG/DAY
     Route: 065
  4. OPAMOX [Concomitant]
     Dosage: WHEN NEEDED
     Route: 065

REACTIONS (24)
  - ANOREXIA [None]
  - ATELECTASIS [None]
  - C-REACTIVE PROTEIN INCREASED [None]
  - DIZZINESS [None]
  - ELECTROCARDIOGRAM T WAVE INVERSION [None]
  - EOSINOPHILIA [None]
  - FATIGUE [None]
  - FIBRIN D DIMER INCREASED [None]
  - HAEMOGLOBIN DECREASED [None]
  - HALLUCINATION [None]
  - INFECTION [None]
  - MALAISE [None]
  - PERICARDIAL EFFUSION [None]
  - PERICARDITIS [None]
  - PERIODONTITIS [None]
  - PLATELET COUNT INCREASED [None]
  - PLEURAL EFFUSION [None]
  - PLEURISY [None]
  - PYREXIA [None]
  - RED BLOOD CELL SEDIMENTATION RATE INCREASED [None]
  - TACHYCARDIA [None]
  - THROMBOCYTOPENIA [None]
  - TOOTH EXTRACTION [None]
  - WHITE BLOOD CELL COUNT INCREASED [None]
